FAERS Safety Report 9660802 (Version 1)
Quarter: 2013Q4

REPORT INFORMATION
  Report Type: Spontaneous
  Country: US (occurrence: US)
  Receive Date: 20131031
  Receipt Date: 20131031
  Transmission Date: 20140711
  Serious: No
  Sender: FDA-Public Use
  Company Number: US-ENDO PHARMACEUTICALS INC.-HCDA20130092

PATIENT
  Sex: Female
  Weight: 90.8 kg

DRUGS (4)
  1. HYDROCODONE BITARTRATE / ACETAMINOPHEN 10MG/325MG [Suspect]
     Indication: BACK PAIN
     Dosage: 40/1300 MG
     Route: 048
     Dates: start: 201211
  2. HYDROCODONE BITARTRATE / ACETAMINOPHEN 10MG/325MG [Suspect]
     Indication: OSTEOPOROSIS
     Dosage: 40/1300 MG
     Route: 048
     Dates: start: 20130503
  3. HYDROCODONE BITARTRATE / ACETAMINOPHEN 10MG/325MG [Suspect]
     Indication: SURGERY
  4. HYDROCODONE BITARTRATE / ACETAMINOPHEN 10MG/325MG [Suspect]
     Indication: KNEE OPERATION

REACTIONS (3)
  - Diarrhoea [Not Recovered/Not Resolved]
  - Blood pressure fluctuation [Not Recovered/Not Resolved]
  - Dizziness [Not Recovered/Not Resolved]
